FAERS Safety Report 7331749-9 (Version None)
Quarter: 2011Q1

REPORT INFORMATION
  Report Type: 
  Country: None (occurrence: None)
  Receive Date: 20110228
  Receipt Date: 20110228
  Transmission Date: 20110831
  Serious: No
  Sender: FDA-Public Use
  Company Number: None

PATIENT
  Sex: Male
  Weight: 100.6985 kg

DRUGS (1)
  1. BONIVA [Suspect]
     Indication: OSTEOPENIA
     Dosage: 3 MG 1X
     Dates: start: 20101229

REACTIONS (6)
  - ARTHRALGIA [None]
  - PAIN [None]
  - GAIT DISTURBANCE [None]
  - CHILLS [None]
  - HEADACHE [None]
  - BODY TEMPERATURE INCREASED [None]
